FAERS Safety Report 9358698 (Version 2)
Quarter: 2013Q3

REPORT INFORMATION
  Report Type: Spontaneous
  Country: JP (occurrence: JP)
  Receive Date: 20130620
  Receipt Date: 20130701
  Transmission Date: 20140515
  Serious: Yes (Death)
  Sender: FDA-Public Use
  Company Number: JP-GLAXOSMITHKLINE-B0900582A

PATIENT
  Age: 5 Decade
  Sex: Female

DRUGS (1)
  1. VOTRIENT [Suspect]
     Indication: UTERINE LEIOMYOSARCOMA
     Dosage: 200MG PER DAY
     Route: 048
     Dates: start: 20130218, end: 20130415

REACTIONS (2)
  - Uterine leiomyosarcoma [Fatal]
  - Hepatic function abnormal [Unknown]
